FAERS Safety Report 23794139 (Version 1)
Quarter: 2024Q2

REPORT INFORMATION
  Report Type: Spontaneous
  Country: US (occurrence: US)
  Receive Date: 20240429
  Receipt Date: 20240429
  Transmission Date: 20240715
  Serious: No
  Sender: FDA-Public Use
  Company Number: US-MAYNE PHARMA-2024MYN000092

PATIENT

DRUGS (1)
  1. NEXTSTELLIS [Suspect]
     Active Substance: DROSPIRENONE\ESTETROL MONOHYDRATE
     Indication: Product used for unknown indication
     Dosage: 3 MG
     Route: 065

REACTIONS (2)
  - Product dose omission in error [Unknown]
  - Inappropriate schedule of product administration [Unknown]
